FAERS Safety Report 21611153 (Version 1)
Quarter: 2022Q4

REPORT INFORMATION
  Report Type: Spontaneous
  Country: US (occurrence: US)
  Receive Date: 20221117
  Receipt Date: 20221117
  Transmission Date: 20230113
  Serious: No
  Sender: FDA-Public Use
  Company Number: US-SA-SAC20221114001573

PATIENT
  Age: 76 Year
  Sex: Female

DRUGS (1)
  1. CEREZYME [Suspect]
     Active Substance: IMIGLUCERASE
     Indication: Gaucher^s disease
     Dosage: 5600 IU, QOW
     Route: 042
     Dates: start: 20171013

REACTIONS (4)
  - Malaise [Unknown]
  - Nausea [Unknown]
  - Dizziness [Unknown]
  - Diarrhoea [Unknown]

NARRATIVE: CASE EVENT DATE: 20221103
